FAERS Safety Report 18985983 (Version 27)
Quarter: 2025Q2

REPORT INFORMATION
  Report Type: Report from Study
  Country: US (occurrence: US)
  Receive Date: 20210309
  Receipt Date: 20250607
  Transmission Date: 20250717
  Serious: Yes (Other)
  Sender: TAKEDA
  Company Number: US-SHIRE-US202026435

PATIENT
  Age: 45 Year
  Sex: Female
  Weight: 80 kg

DRUGS (21)
  1. HUMAN IMMUNOGLOBULIN G [Suspect]
     Active Substance: HUMAN IMMUNOGLOBULIN G
     Indication: Primary immunodeficiency syndrome
     Dosage: 12 GRAM, 1/WEEK
     Dates: start: 20170504
  2. HUMAN IMMUNOGLOBULIN G [Suspect]
     Active Substance: HUMAN IMMUNOGLOBULIN G
     Indication: Immunodeficiency common variable
     Dosage: 12 GRAM, 1/WEEK
     Dates: start: 20170505
  3. ACETAMINOPHEN [Concomitant]
     Active Substance: ACETAMINOPHEN
  4. TRAZODONE HCL [Concomitant]
     Active Substance: TRAZODONE HYDROCHLORIDE
  5. TYLENOL [Concomitant]
     Active Substance: ACETAMINOPHEN
  6. LEVOTHYROXINE [Concomitant]
     Active Substance: LEVOTHYROXINE
  7. OYSTER SHELL [Concomitant]
     Active Substance: OSTREA EDULIS SHELL
  8. VITAMIN D3 [Concomitant]
     Active Substance: CHOLECALCIFEROL
  9. ASMANEX HFA [Concomitant]
     Active Substance: MOMETASONE FUROATE
  10. MOTRIN IB [Concomitant]
     Active Substance: IBUPROFEN
  11. XANAX [Concomitant]
     Active Substance: ALPRAZOLAM
  12. BENADRYL [Concomitant]
     Active Substance: DIPHENHYDRAMINE HYDROCHLORIDE
  13. DIPHENHYDRAMINE HYDROCHLORIDE [Concomitant]
     Active Substance: DIPHENHYDRAMINE HYDROCHLORIDE
  14. BIOTIN [Concomitant]
     Active Substance: BIOTIN
  15. WELLBUTRIN SR [Concomitant]
     Active Substance: BUPROPION HYDROCHLORIDE
  16. ALEVE [Concomitant]
     Active Substance: NAPROXEN SODIUM
  17. EPINEPHRINE [Concomitant]
     Active Substance: EPINEPHRINE
  18. WELLBUTRIN [Concomitant]
     Active Substance: BUPROPION HYDROCHLORIDE
  19. CALCIUM\VITAMIN D [Concomitant]
     Active Substance: CALCIUM\VITAMIN D
  20. LEVOXYL [Concomitant]
     Active Substance: LEVOTHYROXINE SODIUM
  21. DIPHENHYDRAMINE [Concomitant]
     Active Substance: DIPHENHYDRAMINE

REACTIONS (44)
  - Pneumonia [Unknown]
  - Shoulder fracture [Unknown]
  - Infusion related reaction [Unknown]
  - Bronchial disorder [Unknown]
  - Illness [Unknown]
  - Needle issue [Unknown]
  - Urinary tract infection [Recovered/Resolved]
  - Weight decreased [Unknown]
  - Injection site bruising [Unknown]
  - Rotator cuff syndrome [Unknown]
  - Bronchitis [Unknown]
  - Fall [Unknown]
  - Post procedural infection [Unknown]
  - Gastrooesophageal reflux disease [Unknown]
  - COVID-19 [Recovering/Resolving]
  - Herpes zoster [Unknown]
  - Infection [Unknown]
  - Joint injury [Unknown]
  - Seasonal allergy [Unknown]
  - Asthma [Unknown]
  - Streptococcal infection [Unknown]
  - Upper respiratory tract infection [Unknown]
  - Oral pain [Unknown]
  - Root canal infection [Unknown]
  - Oral infection [Unknown]
  - Road traffic accident [Unknown]
  - Gingivitis [Unknown]
  - Oral lichen planus [Unknown]
  - Dermatitis contact [Unknown]
  - Feeling abnormal [Unknown]
  - Infusion site induration [Unknown]
  - Contusion [Unknown]
  - Eye swelling [Unknown]
  - Injection site swelling [Unknown]
  - Infusion site discomfort [Unknown]
  - Rash [Unknown]
  - Malaise [Unknown]
  - Infusion site pruritus [Unknown]
  - Infusion site pain [Unknown]
  - Arthralgia [Unknown]
  - Migraine [Unknown]
  - Fatigue [Unknown]
  - Urticaria [Unknown]
  - Nausea [Unknown]

NARRATIVE: CASE EVENT DATE: 20240131
